FAERS Safety Report 5659410-7 (Version None)
Quarter: 2008Q1

REPORT INFORMATION
  Report Type: 
  Country: None (occurrence: None)
  Receive Date: 20080311
  Receipt Date: 20080222
  Transmission Date: 20080703
  Serious: Yes (Hospitalization)
  Sender: FDA-Public Use
  Company Number: GB-RANBAXY-2008RR-13280

PATIENT

DRUGS (3)
  1. ONDANSETRON [Suspect]
     Route: 065
  2. CODEINE SUL TAB [Suspect]
  3. AMOXICILLIN [Suspect]

REACTIONS (1)
  - TOXIC SKIN ERUPTION [None]
